FAERS Safety Report 4953734-4 (Version None)
Quarter: 2006Q1

REPORT INFORMATION
  Report Type: 
  Country: None (occurrence: None)
  Receive Date: 20060327
  Receipt Date: 20060314
  Transmission Date: 20060701
  Serious: Yes (Hospitalization)
  Sender: FDA-Public Use
  Company Number: JP-JNJFOC-20060103502

PATIENT
  Sex: Male
  Weight: 60 kg

DRUGS (4)
  1. REMICADE [Suspect]
     Route: 042
  2. REMICADE [Suspect]
     Indication: CROHN'S DISEASE
     Route: 042
  3. PENTASA [Suspect]
     Dosage: DAILY DOSE:  12 TABLETS
     Route: 048
  4. SAWACILLIN [Concomitant]
     Indication: PYREXIA
     Dosage: DAILY DOSE:  ^3 CAP^
     Route: 048

REACTIONS (1)
  - PULMONARY TUBERCULOSIS [None]
